FAERS Safety Report 18989375 (Version 1)
Quarter: 2021Q1

REPORT INFORMATION
  Report Type: Spontaneous
  Country: US (occurrence: US)
  Receive Date: 20210309
  Receipt Date: 20210309
  Transmission Date: 20210420
  Serious: Yes (Other)
  Sender: FDA-Public Use
  Company Number: US-PFIZER INC-2021235668

PATIENT
  Age: 60 Year
  Sex: Female
  Weight: 126 kg

DRUGS (11)
  1. COMPLEX B [VITAMIN B COMPLEX] [Concomitant]
     Dosage: 100 TABLET ER
  2. MAXALT [Concomitant]
     Active Substance: RIZATRIPTAN BENZOATE
  3. FISH OIL [Concomitant]
     Active Substance: FISH OIL
     Dosage: 100?160 MG
  4. OMEPRAZOLE. [Concomitant]
     Active Substance: OMEPRAZOLE
     Dosage: 100%%
  5. LEFLUNOMIDE. [Concomitant]
     Active Substance: LEFLUNOMIDE
  6. XELJANZ XR [Suspect]
     Active Substance: TOFACITINIB CITRATE
     Indication: RHEUMATOID ARTHRITIS
     Dosage: 11 MG, DAILY
     Route: 048
  7. NYSTATIN. [Concomitant]
     Active Substance: NYSTATIN
     Dosage: 100000/G
  8. CLOBETASOL [Concomitant]
     Active Substance: CLOBETASOL
  9. METAMUCIL [Concomitant]
     Active Substance: PLANTAGO SEED
     Dosage: 3.4 G POWD PACK
  10. VITAMIN D3 [Concomitant]
     Active Substance: CHOLECALCIFEROL
     Dosage: 100000/G
  11. SERTRALINE HCL [Concomitant]
     Active Substance: SERTRALINE HYDROCHLORIDE
     Dosage: 100 %

REACTIONS (4)
  - Fatigue [Unknown]
  - Pain [Unknown]
  - Fungal infection [Unknown]
  - Disturbance in attention [Unknown]

NARRATIVE: CASE EVENT DATE: 202101
